FAERS Safety Report 16168787 (Version 2)
Quarter: 2019Q4

REPORT INFORMATION
  Report Type: Report from Study
  Country: US (occurrence: US)
  Receive Date: 20190408
  Receipt Date: 20191031
  Transmission Date: 20200122
  Serious: No
  Sender: FDA-Public Use
  Company Number: US-ROCHE-2297548

PATIENT
  Age: 58 Year
  Sex: Female

DRUGS (2)
  1. OCREVUS [Suspect]
     Active Substance: OCRELIZUMAB
     Indication: MULTIPLE SCLEROSIS
     Dosage: ON 29/NOV/2018, FIRST SPLIT DOSE. ON 13/DEC/2018, SECOND SPLIT DOSE.
     Route: 065
     Dates: start: 20181129, end: 20181213
  2. OCREVUS [Suspect]
     Active Substance: OCRELIZUMAB
     Dosage: FULL DOSE
     Route: 065

REACTIONS (5)
  - Paraesthesia [Recovering/Resolving]
  - Ill-defined disorder [Unknown]
  - Hyperaesthesia [Unknown]
  - Sinusitis [Unknown]
  - Alopecia [Unknown]

NARRATIVE: CASE EVENT DATE: 20181213
